FAERS Safety Report 7060502-9 (Version None)
Quarter: 2010Q4

REPORT INFORMATION
  Report Type: 
  Country: None (occurrence: None)
  Receive Date: 20101025
  Receipt Date: 20101013
  Transmission Date: 20110411
  Serious: Yes (Hospitalization, Other)
  Sender: FDA-Public Use
  Company Number: US-PFIZER INC-2010130841

PATIENT
  Sex: Female
  Weight: 122.45 kg

DRUGS (8)
  1. XANAX [Suspect]
     Indication: DEPRESSION
     Dosage: UNK, 1X/DAY
     Route: 048
     Dates: start: 20100401, end: 20100829
  2. XANAX [Suspect]
     Indication: SLEEP DISORDER
  3. ZOLOFT [Concomitant]
     Dosage: UNK
  4. GLUCOTROL [Concomitant]
     Dosage: UNK
  5. METOPROLOL [Concomitant]
     Dosage: UNK
  6. LOVASTATIN [Concomitant]
     Dosage: UNK
  7. TRICOR [Concomitant]
     Dosage: UNK
  8. FEOSOL [Concomitant]
     Dosage: UNK, 1X/DAY

REACTIONS (7)
  - BLOOD GLUCOSE INCREASED [None]
  - COUGH [None]
  - DEPRESSION [None]
  - FEELING ABNORMAL [None]
  - HYPERSENSITIVITY [None]
  - RENAL IMPAIRMENT [None]
  - SLEEP DISORDER [None]
